FAERS Safety Report 4869608-3 (Version None)
Quarter: 2005Q4

REPORT INFORMATION
  Report Type: 
  Country: None (occurrence: None)
  Receive Date: 20051227
  Receipt Date: 20051205
  Transmission Date: 20060501
  Serious: Yes (Death)
  Sender: FDA-Public Use
  Company Number: 0512-670

PATIENT
  Age: 1 Day
  Sex: Male
  Weight: 3200 kg

DRUGS (2)
  1. CUROSURF 120 MG/1.5 ML [Suspect]
     Indication: RESPIRATORY DISTRESS
     Dosage: INTRATRACHEAL
     Route: 039
  2. DIAZEPAM [Concomitant]

REACTIONS (6)
  - GENERAL PHYSICAL HEALTH DETERIORATION [None]
  - HEART RATE INCREASED [None]
  - JAUNDICE NEONATAL [None]
  - LEUKOPENIA NEONATAL [None]
  - NEONATAL DISORDER [None]
  - PNEUMOCOCCAL INFECTION [None]
